FAERS Safety Report 11012432 (Version 1)
Quarter: 2015Q2

REPORT INFORMATION
  Report Type: Spontaneous
  Country: US (occurrence: None)
  Receive Date: 20150410
  Receipt Date: 20150410
  Transmission Date: 20150821
  Serious: Yes (Hospitalization)
  Sender: FDA-Public Use
  Company Number: None

PATIENT
  Age: 73 Year
  Sex: Female
  Weight: 73 kg

DRUGS (16)
  1. DSS [Concomitant]
     Active Substance: DOCUSATE SODIUM
  2. OXYGEN. [Concomitant]
     Active Substance: OXYGEN
  3. LUMIGAN [Concomitant]
     Active Substance: BIMATOPROST
  4. OMEPRAZOLE (PRILOSEC) [Concomitant]
  5. OXYCODONE-ACETAMINOPHEN (PERCOCET) [Concomitant]
  6. POTASSIUM CHLORIDE (KLOR-CON) [Concomitant]
  7. CIPROFLOXACIN. [Suspect]
     Active Substance: CIPROFLOXACIN
     Indication: ABSCESS
     Route: 048
     Dates: start: 20150327, end: 20150401
  8. CIPROFLOXACIN (CIPRO) [Concomitant]
  9. LOVASTATIN (MEVACOR) [Concomitant]
  10. FOSAMAX [Concomitant]
     Active Substance: ALENDRONATE SODIUM
  11. FUROSEMIDE (LASIX) [Concomitant]
  12. OXYCODONE-ACETAMINOPHEN (PERCOCET) [Concomitant]
  13. PANTOPRAZOLE (PROTONIX) [Concomitant]
  14. MIRTAZAPINE (RFEMERON) [Concomitant]
  15. LISINOPRIL (PRINIVIL, ZESTRIL) [Concomitant]
  16. ONDANSETRON (ZOFRAN-ODT) [Concomitant]

REACTIONS (5)
  - Vomiting [None]
  - Abdominal pain lower [None]
  - Diarrhoea [None]
  - Clostridium difficile colitis [None]
  - Nausea [None]

NARRATIVE: CASE EVENT DATE: 20150401
